FAERS Safety Report 24230090 (Version 4)
Quarter: 2025Q1

REPORT INFORMATION
  Report Type: Report from Study
  Country: CA (occurrence: CA)
  Receive Date: 20240820
  Receipt Date: 20250219
  Transmission Date: 20250409
  Serious: Yes (Other)
  Sender: JOHNSON AND JOHNSON
  Company Number: CA-JNJFOC-20240363696

PATIENT
  Age: 37 Year
  Sex: Female
  Weight: 110 kg

DRUGS (11)
  1. SIMPONI [Suspect]
     Active Substance: GOLIMUMAB
     Indication: Psoriatic arthropathy
     Route: 041
     Dates: start: 20231020
  2. SIMPONI [Suspect]
     Active Substance: GOLIMUMAB
     Indication: Psoriasis
     Route: 041
  3. SIMPONI [Suspect]
     Active Substance: GOLIMUMAB
     Route: 041
  4. SIMPONI [Suspect]
     Active Substance: GOLIMUMAB
     Route: 041
  5. SIMPONI [Suspect]
     Active Substance: GOLIMUMAB
     Route: 041
  6. SIMPONI [Suspect]
     Active Substance: GOLIMUMAB
     Dosage: STRENGTH: 50MG/4ML?DOSE:2MG/KG
     Route: 041
  7. SIMPONI [Suspect]
     Active Substance: GOLIMUMAB
     Route: 041
  8. COVID-19 VACCINE NOS [Suspect]
     Active Substance: COVID-19 VACCINE
     Indication: Product used for unknown indication
  9. PANTOPRAZOLE [Suspect]
     Active Substance: PANTOPRAZOLE
     Indication: Product used for unknown indication
     Route: 065
  10. PREDNISONE [Suspect]
     Active Substance: PREDNISONE
     Indication: Lupus-like syndrome
     Route: 065
  11. RUPATADINE FUMARATE [Concomitant]
     Active Substance: RUPATADINE FUMARATE

REACTIONS (12)
  - Psoriatic arthropathy [Recovered/Resolved]
  - Lupus-like syndrome [Unknown]
  - Intentional product use issue [Unknown]
  - Influenza like illness [Recovering/Resolving]
  - Mastitis [Unknown]
  - Cellulitis [Unknown]
  - Blood pressure decreased [Recovered/Resolved]
  - Rash [Not Recovered/Not Resolved]
  - Vaginal infection [Recovered/Resolved]
  - Off label use [Unknown]
  - Infusion related reaction [Unknown]
  - Nasal congestion [Not Recovered/Not Resolved]

NARRATIVE: CASE EVENT DATE: 20240301
